FAERS Safety Report 20724361 (Version 1)
Quarter: 2022Q2

REPORT INFORMATION
  Report Type: Spontaneous
  Country: US (occurrence: None)
  Receive Date: 20220418
  Receipt Date: 20220418
  Transmission Date: 20220720
  Serious: Yes (Hospitalization)
  Sender: FDA-Public Use
  Company Number: None

PATIENT
  Age: 77 Year
  Sex: Male
  Weight: 79.8 kg

DRUGS (4)
  1. DARATUMUMAB [Suspect]
     Active Substance: DARATUMUMAB
     Indication: Plasma cell myeloma
     Dosage: FREQUENCY : WEEKLY;?
     Route: 058
     Dates: start: 20220329, end: 20220329
  2. SELINEXOR [Concomitant]
     Active Substance: SELINEXOR
  3. LENALIDOMIDE [Concomitant]
     Active Substance: LENALIDOMIDE
  4. DEXAMETHASONE [Concomitant]
     Active Substance: DEXAMETHASONE

REACTIONS (3)
  - Fall [None]
  - Dizziness [None]
  - Dehydration [None]

NARRATIVE: CASE EVENT DATE: 20220331
